FAERS Safety Report 24765117 (Version 1)
Quarter: 2024Q4

REPORT INFORMATION
  Report Type: Spontaneous
  Country: US (occurrence: None)
  Receive Date: 20241219
  Receipt Date: 20241219
  Transmission Date: 20250115
  Serious: Yes (Hospitalization)
  Sender: Public
  Company Number: None

PATIENT
  Age: 73 Year
  Sex: Female
  Weight: 120 kg

DRUGS (1)
  1. EMPAGLIFLOZIN [Suspect]
     Active Substance: EMPAGLIFLOZIN
     Indication: Diabetes mellitus
     Dosage: 12.50 MG  AM ORAL ?
     Route: 048

REACTIONS (3)
  - Urinary tract infection [None]
  - Vulval abscess [None]
  - Wound infection staphylococcal [None]

NARRATIVE: CASE EVENT DATE: 20240321
